FAERS Safety Report 4391909-6 (Version None)
Quarter: 2004Q3

REPORT INFORMATION
  Report Type: 
  Country: None (occurrence: None)
  Receive Date: 20040701
  Receipt Date: 20040617
  Transmission Date: 20050211
  Serious: No
  Sender: FDA-Public Use
  Company Number: 04P-163-0264203-00

PATIENT
  Age: 60 Year
  Sex: Female
  Weight: 108.8633 kg

DRUGS (4)
  1. HUMIRA [Suspect]
     Indication: RHEUMATOID ARTHRITIS
     Dosage: 40 MG, SUBCUTANEOUS
     Route: 058
     Dates: start: 20030101, end: 20040201
  2. CELECOXIB [Concomitant]
  3. PREDNISONE [Concomitant]
  4. METHOTREXATE SODIUM [Concomitant]

REACTIONS (1)
  - ACUTE LEUKAEMIA [None]
